FAERS Safety Report 25772892 (Version 1)
Quarter: 2025Q3

REPORT INFORMATION
  Report Type: Spontaneous
  Country: IN (occurrence: IN)
  Receive Date: 20250908
  Receipt Date: 20250908
  Transmission Date: 20251020
  Serious: Yes (Death, Life-Threatening, Hospitalization, Other)
  Sender: PURACAP PHARMACEUTICAL LLC
  Company Number: IN-PURACAP-IN-2025EPCLIT01050

PATIENT
  Age: 50 Year
  Sex: Female

DRUGS (1)
  1. AMLODIPINE [Suspect]
     Active Substance: AMLODIPINE BESYLATE
     Indication: Product used for unknown indication
     Route: 048
     Dates: start: 20230324

REACTIONS (19)
  - Cardiac arrest [Fatal]
  - Non-cardiogenic pulmonary oedema [Fatal]
  - Shock [Fatal]
  - Acute kidney injury [Fatal]
  - Capillary leak syndrome [Fatal]
  - Toxicity to various agents [Fatal]
  - Metabolic acidosis [Fatal]
  - Confusional state [Fatal]
  - Dizziness [Fatal]
  - Hyperhidrosis [Fatal]
  - Paraesthesia [Fatal]
  - Hypoaesthesia [Fatal]
  - Vomiting [Fatal]
  - Hypotension [Fatal]
  - Pyrexia [Fatal]
  - White blood cell count increased [Fatal]
  - Heart rate increased [Fatal]
  - Pleural effusion [Fatal]
  - Intentional overdose [Unknown]

NARRATIVE: CASE EVENT DATE: 20230301
